FAERS Safety Report 15246977 (Version 2)
Quarter: 2018Q3

REPORT INFORMATION
  Report Type: Spontaneous
  Country: US (occurrence: US)
  Receive Date: 20180806
  Receipt Date: 20180810
  Transmission Date: 20181010
  Serious: Yes (Other)
  Sender: FDA-Public Use
  Company Number: US-009507513-1808USA000234

PATIENT
  Sex: Female

DRUGS (1)
  1. THERAPY UNSPECIFIED [Suspect]
     Active Substance: UNSPECIFIED INGREDIENT

REACTIONS (3)
  - Malignant neoplasm progression [Not Recovered/Not Resolved]
  - Triple negative breast cancer [Not Recovered/Not Resolved]
  - Product use in unapproved indication [Unknown]
